FAERS Safety Report 9121390 (Version 3)
Quarter: 2013Q2

REPORT INFORMATION
  Report Type: Report from Study
  Country: FR (occurrence: FR)
  Receive Date: 20130225
  Receipt Date: 20130506
  Transmission Date: 20140414
  Serious: Yes (Other)
  Sender: FDA-Public Use
  Company Number: PHHY2013FR015953

PATIENT
  Age: 19 Year
  Sex: Male
  Weight: 72 kg

DRUGS (10)
  1. ACZ885 [Suspect]
     Indication: MUCKLE-WELLS SYNDROME
     Dosage: 150 MG, EVERY 8 WEEKS
     Route: 058
     Dates: start: 20090701, end: 20100126
  2. ACZ885 [Suspect]
     Dosage: 300 MG, EVERY 8 WEEKS
     Route: 058
     Dates: start: 20100312
  3. ACZ885 [Suspect]
     Dosage: UNK
     Dates: start: 20120627
  4. ACZ885 [Suspect]
     Dosage: UNK
     Dates: start: 20120830
  5. ACZ885 [Suspect]
     Dosage: UNK
     Dates: start: 20121021
  6. ACZ885 [Suspect]
     Dosage: UNK
     Dates: start: 20121212
  7. ACZ885 [Suspect]
     Dosage: UNK
     Dates: start: 20130131
  8. PNEUMO 23 [Suspect]
     Indication: IMMUNISATION
     Dosage: UNK
     Route: 058
     Dates: start: 20130123
  9. INFLUENZA VACCINE [Concomitant]
     Indication: IMMUNISATION
     Dosage: UNK
     Dates: start: 20121121
  10. AERIUS [Concomitant]
     Dosage: 1 DF, DAILY
     Dates: start: 20130123, end: 20130123

REACTIONS (11)
  - Inflammation [Recovered/Resolved]
  - Extensive swelling of vaccinated limb [Recovered/Resolved]
  - Joint ankylosis [Unknown]
  - Pyrexia [Recovered/Resolved]
  - Injection site pain [Recovered/Resolved]
  - Injection site induration [Recovered/Resolved]
  - Injection site erythema [Recovered/Resolved]
  - Injection site warmth [Recovered/Resolved]
  - Nasopharyngitis [Unknown]
  - C-reactive protein increased [Unknown]
  - Antibody test abnormal [Unknown]
